FAERS Safety Report 7641479-1 (Version None)
Quarter: 2011Q3

REPORT INFORMATION
  Report Type: 
  Country: None (occurrence: None)
  Receive Date: 20110727
  Receipt Date: 20110727
  Transmission Date: 20111222
  Serious: No
  Sender: FDA-Public Use
  Company Number: None

PATIENT
  Sex: Female

DRUGS (1)
  1. ENBREL [Suspect]
     Indication: PSORIASIS
     Dosage: 50MG BIW SQ
     Route: 058
     Dates: start: 20110527

REACTIONS (7)
  - COUGH [None]
  - STRESS [None]
  - HAIR TEXTURE ABNORMAL [None]
  - ALOPECIA [None]
  - NERVOUSNESS [None]
  - INCREASED UPPER AIRWAY SECRETION [None]
  - DRY SKIN [None]
